FAERS Safety Report 4299090-9 (Version None)
Quarter: 2004Q1

REPORT INFORMATION
  Report Type: 
  Country: None (occurrence: None)
  Receive Date: 20040219
  Receipt Date: 20031212
  Transmission Date: 20041129
  Serious: Yes (Hospitalization)
  Sender: FDA-Public Use
  Company Number: HU-BRISTOL-MYERS SQUIBB COMPANY-12457164

PATIENT
  Age: 7 Year
  Sex: Male

DRUGS (4)
  1. PARAPLATIN [Suspect]
     Indication: NEOPLASM
     Route: 042
     Dates: start: 20031117, end: 20031117
  2. IRINOTECAN [Suspect]
     Indication: NEOPLASM
     Route: 042
     Dates: start: 20031117, end: 20031128
  3. FILGRASTIM [Suspect]
     Indication: NEOPLASM
     Route: 058
     Dates: start: 20031129, end: 20031201
  4. LOPERAMIDE HCL [Concomitant]
     Dates: start: 20031204, end: 20031209

REACTIONS (7)
  - ANAEMIA [None]
  - DEHYDRATION [None]
  - EPISTAXIS [None]
  - GRANULOCYTOPENIA [None]
  - INFECTION [None]
  - SEPSIS [None]
  - THROMBOCYTOPENIA [None]
